FAERS Safety Report 21349468 (Version 1)
Quarter: 2022Q3

REPORT INFORMATION
  Report Type: Spontaneous
  Country: US (occurrence: US)
  Receive Date: 20220919
  Receipt Date: 20220919
  Transmission Date: 20221026
  Serious: No
  Sender: FDA-Public Use
  Company Number: US-BEH-2022149581

PATIENT
  Sex: Female

DRUGS (1)
  1. PRIVIGEN [Suspect]
     Active Substance: HUMAN IMMUNOGLOBULIN G
     Indication: Good syndrome
     Dosage: 50 GRAM, QOW
     Route: 065

REACTIONS (3)
  - Drug intolerance [Unknown]
  - No adverse event [Unknown]
  - Off label use [Unknown]
